FAERS Safety Report 16654178 (Version 1)
Quarter: 2019Q3

REPORT INFORMATION
  Report Type: Spontaneous
  Country: US (occurrence: US)
  Receive Date: 20190731
  Receipt Date: 20190731
  Transmission Date: 20191004
  Serious: No
  Sender: FDA-Public Use
  Company Number: US-SA-2019SA204541

PATIENT
  Sex: Female

DRUGS (1)
  1. DUPIXENT [Suspect]
     Active Substance: DUPILUMAB
     Dosage: UNK
     Dates: start: 201905

REACTIONS (7)
  - Stomatitis [Recovering/Resolving]
  - Rash erythematous [Recovering/Resolving]
  - Pain [Recovering/Resolving]
  - Lip disorder [Recovering/Resolving]
  - Injection site pain [Recovering/Resolving]
  - Glossodynia [Recovering/Resolving]
  - Arthralgia [Recovering/Resolving]

NARRATIVE: CASE EVENT DATE: 20190720
